FAERS Safety Report 19886481 (Version 2)
Quarter: 2021Q4

REPORT INFORMATION
  Report Type: Spontaneous
  Country: FR (occurrence: FR)
  Receive Date: 20210927
  Receipt Date: 20211006
  Transmission Date: 20220303
  Serious: Yes (Other)
  Sender: FDA-Public Use
  Company Number: FR-GUERBET-FR-20210260

PATIENT
  Sex: Female

DRUGS (3)
  1. IOVERSOL [Suspect]
     Active Substance: IOVERSOL
     Indication: Product used for unknown indication
     Route: 065
     Dates: start: 20210721, end: 20210721
  2. ESTRADIOL [Concomitant]
     Active Substance: ESTRADIOL
     Indication: Hormone replacement therapy
     Route: 065
  3. PROGESTAN 200 [Concomitant]
     Indication: Hormone replacement therapy
     Route: 065

REACTIONS (4)
  - Hyperthyroidism [Recovered/Resolved]
  - Tachycardia [Unknown]
  - Hypotension [Not Recovered/Not Resolved]
  - Near death experience [Unknown]
